FAERS Safety Report 7014810-8 (Version None)
Quarter: 2010Q3

REPORT INFORMATION
  Report Type: 
  Country: None (occurrence: None)
  Receive Date: 20100927
  Receipt Date: 20100915
  Transmission Date: 20110219
  Serious: Yes (Life-Threatening, Hospitalization, Other)
  Sender: FDA-Public Use
  Company Number: FI-BRISTOL-MYERS SQUIBB COMPANY-15299944

PATIENT
  Age: 57 Year
  Sex: Male

DRUGS (11)
  1. ORENCIA [Suspect]
     Indication: RHEUMATOID ARTHRITIS
     Dosage: INTERRUPTED ON:11-MAY-2010
     Route: 042
     Dates: start: 20100416
  2. PREDNISOLONE [Suspect]
     Dosage: 5 MG EVERY SECOND DAY AND 7.5 MG EVERY SECOND DAY
  3. TREXAN (ORION) [Suspect]
  4. KALCIPOS-D [Concomitant]
  5. ARCOXIA [Concomitant]
  6. RISPERIDONE [Concomitant]
  7. IMOVANE [Concomitant]
     Dosage: 1 DF: 7.5-15MG
  8. MIRTAZAPINE [Concomitant]
  9. EFFEXOR [Concomitant]
  10. ORLOC [Concomitant]
     Dosage: 1 DF: 5/12.5 MG
  11. NITROGLYCERIN [Concomitant]

REACTIONS (1)
  - STREPTOCOCCAL SEPSIS [None]
